FAERS Safety Report 7358460-2 (Version None)
Quarter: 2011Q1

REPORT INFORMATION
  Report Type: 
  Country: None (occurrence: None)
  Receive Date: 20110317
  Receipt Date: 20110310
  Transmission Date: 20110831
  Serious: Yes (Other)
  Sender: FDA-Public Use
  Company Number: GB-ABBOTT-10P-167-0693198-00

PATIENT
  Sex: Female
  Weight: 62 kg

DRUGS (1)
  1. HUMIRA [Suspect]
     Indication: PSORIASIS
     Dates: start: 20100621, end: 20100824

REACTIONS (6)
  - URTICARIA [None]
  - PRURITUS [None]
  - ARTHRALGIA [None]
  - INJECTION SITE REACTION [None]
  - OEDEMA [None]
  - MALAISE [None]
